FAERS Safety Report 22274300 (Version 1)
Quarter: 2023Q2

REPORT INFORMATION
  Report Type: Spontaneous
  Country: US (occurrence: US)
  Receive Date: 20230502
  Receipt Date: 20230502
  Transmission Date: 20230721
  Serious: No
  Sender: FDA-Public Use
  Company Number: US-AMNEAL PHARMACEUTICALS-2023-AMRX-00519

PATIENT
  Sex: Female
  Weight: 9.5 kg

DRUGS (2)
  1. VIGABATRIN [Suspect]
     Active Substance: VIGABATRIN
     Indication: Product used for unknown indication
     Dosage: 500 ML PACK MIXED IN 10 ML OF WATER GIVE 4.5 ML TWICE DAILY FOR 3 DAYS
     Route: 048
     Dates: start: 20230122
  2. VIGABATRIN [Suspect]
     Active Substance: VIGABATRIN
     Dosage: 2 PACK IN 10 ML OF WATER GIVEN 9ML TWICE IN A DAY
     Route: 048

REACTIONS (2)
  - Incorrect dose administered [Unknown]
  - No adverse event [Unknown]
